FAERS Safety Report 7596961-2 (Version None)
Quarter: 2011Q3

REPORT INFORMATION
  Report Type: 
  Country: None (occurrence: None)
  Receive Date: 20110708
  Receipt Date: 20110630
  Transmission Date: 20111222
  Serious: Yes (Hospitalization)
  Sender: FDA-Public Use
  Company Number: NL-SANOFI-AVENTIS-2011SA038818

PATIENT
  Age: 75 Year
  Sex: Male

DRUGS (3)
  1. BUDESONIDE [Suspect]
     Route: 048
     Dates: start: 20110514, end: 20110522
  2. CABAZITAXEL [Suspect]
     Route: 042
     Dates: start: 20110516, end: 20110516
  3. PREDNISONE [Suspect]
     Route: 048

REACTIONS (3)
  - CEREBROVASCULAR ACCIDENT [None]
  - DIARRHOEA [None]
  - HAEMATOCHEZIA [None]
